FAERS Safety Report 18198132 (Version 1)
Quarter: 2020Q3

REPORT INFORMATION
  Report Type: Spontaneous
  Country: FR (occurrence: FR)
  Receive Date: 20200826
  Receipt Date: 20200826
  Transmission Date: 20201103
  Serious: Yes (Other)
  Sender: FDA-Public Use
  Company Number: FR-PFIZER INC-2020327124

PATIENT
  Age: 73 Year
  Sex: Female
  Weight: 53 kg

DRUGS (1)
  1. SERTRALINE HCL [Suspect]
     Active Substance: SERTRALINE HYDROCHLORIDE
     Indication: ANXIETY
     Dosage: UNK
     Route: 048
     Dates: start: 20200701, end: 20200707

REACTIONS (1)
  - Glaucoma [Recovering/Resolving]

NARRATIVE: CASE EVENT DATE: 20200707
